FAERS Safety Report 9895745 (Version 2)
Quarter: 2014Q1

REPORT INFORMATION
  Report Type: Spontaneous
  Country: US (occurrence: US)
  Receive Date: 20140213
  Receipt Date: 20140213
  Transmission Date: 20141002
  Serious: No
  Sender: FDA-Public Use
  Company Number: US-BRISTOL-MYERS SQUIBB COMPANY-18990143

PATIENT
  Age: 40 Year
  Sex: Female

DRUGS (4)
  1. ORENCIA FOR INJ 250 MG/VIAL [Suspect]
     Indication: RHEUMATOID ARTHRITIS
     Dosage: 1DF=4 VIALS OF 250MG
     Route: 042
     Dates: start: 20120918
  2. VOLTAREN [Concomitant]
  3. MOTRIN [Concomitant]
  4. METHOTREXATE [Concomitant]

REACTIONS (1)
  - Product reconstitution issue [Unknown]
